FAERS Safety Report 13384279 (Version 1)
Quarter: 2017Q1

REPORT INFORMATION
  Report Type: Spontaneous
  Country: US (occurrence: US)
  Receive Date: 20170329
  Receipt Date: 20170329
  Transmission Date: 20170429
  Serious: Yes (Hospitalization)
  Sender: FDA-Public Use
  Company Number: US-TEVA-753441USA

PATIENT
  Sex: Female

DRUGS (9)
  1. COPAXONE [Suspect]
     Active Substance: GLATIRAMER ACETATE
     Indication: MULTIPLE SCLEROSIS
     Route: 058
     Dates: start: 20140401
  2. FOLIC ACID. [Concomitant]
     Active Substance: FOLIC ACID
  3. MAGNESIUM [Concomitant]
     Active Substance: MAGNESIUM
  4. NORVASC [Concomitant]
     Active Substance: AMLODIPINE BESYLATE
  5. VITAMIN D [Concomitant]
     Active Substance: CHOLECALCIFEROL
  6. CRANBERRY. [Concomitant]
     Active Substance: CRANBERRY
  7. VITAMIN E [Concomitant]
     Active Substance: .ALPHA.-TOCOPHEROL
  8. ASA [Concomitant]
     Active Substance: ASPIRIN
  9. PANTOPRAZOLE [Concomitant]
     Active Substance: PANTOPRAZOLE SODIUM

REACTIONS (2)
  - Urinary tract infection [Unknown]
  - Fall [Unknown]

NARRATIVE: CASE EVENT DATE: 2017
